FAERS Safety Report 4721971-X (Version None)
Quarter: 2005Q3

REPORT INFORMATION
  Report Type: 
  Country: None (occurrence: None)
  Receive Date: 20050720
  Receipt Date: 20050707
  Transmission Date: 20060218
  Serious: Yes (Other)
  Sender: FDA-Public Use
  Company Number: GBWYE217719NOV04

PATIENT

DRUGS (5)
  1. GEMTUZUMAB OZOGAMICIN (GEMTUZUMAB OZOGAMICIN, INJECTION) [Suspect]
     Indication: ACUTE MYELOID LEUKAEMIA
  2. CYTARABINE [Suspect]
     Indication: ACUTE MYELOID LEUKAEMIA
     Dosage: 2G, DAY 1-5
  3. FLUDARABINE (FLUDARABINE, , 0) [Suspect]
     Indication: ACUTE MYELOID LEUKAEMIA
     Dosage: 30MG, DAY 1-5
  4. G-CSF (GRANULOCYTE COLONY STIMULATING FACTOR, , 0) [Suspect]
  5. IDARUBICIN (IDARUBICIN, , 0) [Suspect]
     Indication: ACUTE MYELOID LEUKAEMIA
     Dosage: 12MG, DAY 2-4

REACTIONS (1)
  - THROMBOCYTHAEMIA [None]
